FAERS Safety Report 15186982 (Version 1)
Quarter: 2018Q3

REPORT INFORMATION
  Report Type: Report from Study
  Country: US (occurrence: US)
  Receive Date: 20180723
  Receipt Date: 20180723
  Transmission Date: 20181010
  Serious: No
  Sender: FDA-Public Use
  Company Number: US-EXELIXIS-CABO-18011989

PATIENT
  Sex: Female

DRUGS (12)
  1. FLONASE [Concomitant]
     Active Substance: FLUTICASONE PROPIONATE
  2. FUROSEMIDE. [Concomitant]
     Active Substance: FUROSEMIDE
  3. LATUDA [Concomitant]
     Active Substance: LURASIDONE HYDROCHLORIDE
  4. FENOFIBRATE. [Concomitant]
     Active Substance: FENOFIBRATE
  5. ATORVASTATIN CALCIUM. [Concomitant]
     Active Substance: ATORVASTATIN CALCIUM
  6. FERROUS SULFATE. [Concomitant]
     Active Substance: FERROUS SULFATE
  7. LISINOPRIL. [Concomitant]
     Active Substance: LISINOPRIL
  8. ASPIRIN EC [Concomitant]
     Active Substance: ASPIRIN
  9. CABOMETYX [Suspect]
     Active Substance: CABOZANTINIB S-MALATE
     Indication: RENAL CANCER
     Dosage: 60 MG, QD
     Route: 048
     Dates: start: 20170929
  10. GABAPENTIN. [Concomitant]
     Active Substance: GABAPENTIN
  11. AMLODIPINE BESYLATE. [Concomitant]
     Active Substance: AMLODIPINE BESYLATE
  12. DULOXETINE HCL [Concomitant]
     Active Substance: DULOXETINE HYDROCHLORIDE

REACTIONS (1)
  - Pruritus [Unknown]
